FAERS Safety Report 10238406 (Version 1)
Quarter: 2014Q2

REPORT INFORMATION
  Report Type: Report from Study
  Country: FR (occurrence: FR)
  Receive Date: 20140616
  Receipt Date: 20140616
  Transmission Date: 20141212
  Serious: Yes (Hospitalization)
  Sender: FDA-Public Use
  Company Number: FR-ROCHE-1417175

PATIENT
  Age: 68 Year
  Sex: Male
  Weight: 75 kg

DRUGS (4)
  1. MYCOPHENOLATE MOFETIL [Suspect]
     Indication: RENAL TRANSPLANT
     Route: 048
     Dates: start: 20130313
  2. CICLOSPORIN [Suspect]
     Indication: RENAL TRANSPLANT
     Route: 048
     Dates: start: 20130314, end: 20130524
  3. CICLOSPORIN [Suspect]
     Route: 048
     Dates: start: 20130626
  4. PREDNISOLONE SODIUM METASULFOBENZOATE [Suspect]
     Indication: RENAL TRANSPLANT
     Route: 048
     Dates: start: 20130313

REACTIONS (2)
  - General physical health deterioration [Recovered/Resolved]
  - Cytomegalovirus infection [Recovering/Resolving]
